FAERS Safety Report 5775419-7 (Version None)
Quarter: 2008Q2

REPORT INFORMATION
  Report Type: 
  Country: None (occurrence: None)
  Receive Date: 20080612
  Receipt Date: 20080605
  Transmission Date: 20081010
  Serious: Yes (Hospitalization)
  Sender: FDA-Public Use
  Company Number: 2008GR_BP0325

PATIENT
  Age: 26 Year
  Sex: Female

DRUGS (1)
  1. TERBINAFINE 250 MG TABLET (TERBINAFINE) [Suspect]
     Indication: ONYCHOMYCOSIS
     Dosage: 250 MG (250 MG,1 IN 1 D), ORAL
     Route: 048
     Dates: start: 20080306, end: 20080318

REACTIONS (5)
  - BLOOD PRESSURE INCREASED [None]
  - DRUG ERUPTION [None]
  - DYSPNOEA [None]
  - NAUSEA [None]
  - VERTIGO [None]
